FAERS Safety Report 21359754 (Version 2)
Quarter: 2022Q4

REPORT INFORMATION
  Report Type: Spontaneous
  Country: JP (occurrence: JP)
  Receive Date: 20220921
  Receipt Date: 20221114
  Transmission Date: 20230113
  Serious: Yes (Hospitalization)
  Sender: FDA-Public Use
  Company Number: JP-UCBJ-CD202209374UCBPHAPROD

PATIENT
  Age: 57 Year
  Sex: Male
  Weight: 97 kg

DRUGS (8)
  1. LEVETIRACETAM [Suspect]
     Active Substance: LEVETIRACETAM
     Indication: Seizure prophylaxis
     Dosage: 500 MILLIGRAM, 2X/DAY (BID)
     Route: 048
     Dates: start: 20220309, end: 20220322
  2. LEVETIRACETAM [Suspect]
     Active Substance: LEVETIRACETAM
     Indication: Off label use
  3. AMLODIPINE [Concomitant]
     Active Substance: AMLODIPINE BESYLATE
     Indication: Product used for unknown indication
     Route: 048
     Dates: start: 20220310, end: 20220322
  4. VALSARTAN [Concomitant]
     Active Substance: VALSARTAN
     Indication: Product used for unknown indication
     Route: 048
     Dates: start: 20220307
  5. ACETAMINOPHEN\TRAMADOL HYDROCHLORIDE [Concomitant]
     Active Substance: ACETAMINOPHEN\TRAMADOL HYDROCHLORIDE
     Indication: Product used for unknown indication
     Route: 048
     Dates: start: 20220310, end: 20220321
  6. CEFAZOLIN SODIUM [Concomitant]
     Active Substance: CEFAZOLIN SODIUM
     Indication: Product used for unknown indication
     Dates: start: 20220309, end: 20220314
  7. CALCIUM GLUCONATE\DEXTROSE\MAGNESIUM CHLORIDE\POTASSIUM CHLORIDE\SODIU [Concomitant]
     Active Substance: CALCIUM GLUCONATE\DEXTROSE\MAGNESIUM CHLORIDE\POTASSIUM CHLORIDE\SODIUM ACETATE\SODIUM CHLORIDE\TRIS
     Indication: Product used for unknown indication
     Route: 042
     Dates: start: 20220310, end: 20220313
  8. PRIMPERAN [Concomitant]
     Active Substance: METOCLOPRAMIDE HYDROCHLORIDE
     Indication: Product used for unknown indication
     Route: 042
     Dates: start: 20220311, end: 20220311

REACTIONS (2)
  - Thrombocytopenia [Recovering/Resolving]
  - Off label use [Unknown]

NARRATIVE: CASE EVENT DATE: 20220309
